FAERS Safety Report 7366619-3 (Version None)
Quarter: 2011Q1

REPORT INFORMATION
  Report Type: 
  Country: None (occurrence: None)
  Receive Date: 20110322
  Receipt Date: 20110314
  Transmission Date: 20110831
  Serious: Yes (Death, Hospitalization)
  Sender: FDA-Public Use
  Company Number: CA-SANOFI-AVENTIS-2011SA016501

PATIENT
  Age: 78 Year
  Sex: Male

DRUGS (14)
  1. DOCETAXEL [Suspect]
     Route: 041
     Dates: start: 20100101, end: 20100101
  2. DOCETAXEL [Suspect]
     Route: 041
     Dates: start: 20101216, end: 20101216
  3. BLINDED THERAPY [Suspect]
     Indication: PROSTATE CANCER
     Route: 048
     Dates: start: 20101104, end: 20101216
  4. DOCETAXEL [Suspect]
     Indication: PROSTATE CANCER
     Route: 041
     Dates: start: 20101104, end: 20101104
  5. GLYBURIDE [Concomitant]
     Dates: start: 20101111
  6. PREDNISONE [Suspect]
     Indication: PROSTATE CANCER
     Route: 048
     Dates: start: 20101104, end: 20110109
  7. ALFUZOSIN [Concomitant]
  8. METOPROLOL [Concomitant]
     Dates: start: 20051001
  9. ACETAMINOPHEN [Concomitant]
     Dates: start: 20080101
  10. PERINDOPRIL [Concomitant]
  11. METFORMIN [Concomitant]
     Dates: start: 20090801
  12. OXAZEPAM [Concomitant]
     Dates: start: 20070723
  13. ISOSORBIDE DINITRATE [Concomitant]
     Dates: start: 20081001
  14. OMEPRAZOLE [Concomitant]
     Dates: start: 20051025

REACTIONS (3)
  - PNEUMONIA [None]
  - PNEUMOTHORAX [None]
  - PULMONARY EMBOLISM [None]
